FAERS Safety Report 23397859 (Version 1)
Quarter: 2024Q1

REPORT INFORMATION
  Report Type: Spontaneous
  Country: US (occurrence: US)
  Receive Date: 20240112
  Receipt Date: 20240112
  Transmission Date: 20240409
  Serious: Yes (Other)
  Sender: FDA-Public Use
  Company Number: US-DRL-USA-LIT/USA/24/0000361

PATIENT
  Age: 37 Year
  Sex: Female

DRUGS (3)
  1. PEMETREXED [Suspect]
     Active Substance: PEMETREXED
     Indication: Non-small cell lung cancer metastatic
  2. CARBOPLATIN [Suspect]
     Active Substance: CARBOPLATIN
     Indication: Non-small cell lung cancer metastatic
  3. LORLATINIB [Concomitant]
     Active Substance: LORLATINIB
     Indication: Cognitive disorder
     Dosage: 75 MG DAILY, REDUCED TO 50 MG DAILY.

REACTIONS (2)
  - Disease progression [Unknown]
  - Drug ineffective [Unknown]
